FAERS Safety Report 8557746 (Version 8)
Quarter: 2012Q4

REPORT INFORMATION
  Report Type: Report from Study
  Country: AU (occurrence: AU)
  Receive Date: 20120511
  Receipt Date: 20121114
  Transmission Date: 20130627
  Serious: Yes (Hospitalization, Other)
  Sender: FDA-Public Use
  Company Number: AU-AMGEN-AUSCT2012028669

PATIENT
  Age: 75 Year
  Sex: Female
  Weight: 50 kg

DRUGS (8)
  1. DENOSUMAB [Suspect]
     Indication: OSTEOPOROSIS POSTMENOPAUSAL
     Dosage: UNK UNK, q6mo
     Route: 058
     Dates: start: 20080122, end: 20120118
  2. LOSEC [Concomitant]
     Indication: GASTROOESOPHAGEAL REFLUX DISEASE
     Dosage: 60 mg, prn
     Route: 048
     Dates: start: 2002
  3. AVAPRO [Concomitant]
     Dosage: UNK UNK, prn
     Route: 048
     Dates: start: 201112
  4. VYTORIN [Concomitant]
     Dosage: UNK UNK, qd
     Route: 048
     Dates: start: 201106
  5. CALCIUM [Concomitant]
     Dosage: 600 mg, bid
     Route: 048
     Dates: start: 200501
  6. OSTELIN [Concomitant]
     Dosage: 1000 IU, qd
     Route: 048
     Dates: start: 200409
  7. METFORMIN [Concomitant]
     Indication: TYPE 1 DIABETES MELLITUS
     Dosage: UNK
     Route: 048
     Dates: start: 200809
  8. GLIBENCLAMIDE [Concomitant]
     Indication: TYPE 1 DIABETES MELLITUS
     Dosage: 2.5 mg, bid
     Route: 048
     Dates: start: 1985

REACTIONS (3)
  - Oesophageal squamous cell carcinoma [Not Recovered/Not Resolved]
  - Stomatitis [Recovering/Resolving]
  - Oesophagitis [Recovering/Resolving]
